FAERS Safety Report 25392831 (Version 1)
Quarter: 2025Q2

REPORT INFORMATION
  Report Type: Spontaneous
  Country: DK (occurrence: DK)
  Receive Date: 20250603
  Receipt Date: 20250603
  Transmission Date: 20250717
  Serious: Yes (Disabling)
  Sender: ASTELLAS
  Company Number: None

PATIENT
  Age: 49 Year
  Sex: Female
  Weight: 64 kg

DRUGS (5)
  1. TACROLIMUS [Suspect]
     Active Substance: TACROLIMUS
     Indication: Immunosuppressant drug therapy
     Dosage: STRENGTH: 1 MG AND 5 MG
     Route: 048
     Dates: start: 20230425, end: 20241124
  2. TACROLIMUS [Suspect]
     Active Substance: TACROLIMUS
     Indication: Renal and liver transplant
  3. MYCOPHENOLATE MOFETIL [Concomitant]
     Active Substance: MYCOPHENOLATE MOFETIL
     Indication: Immunosuppressant drug therapy
     Dosage: STRENGTH: 500 MG
     Route: 048
     Dates: start: 20230425
  4. PREDNISOLONE [Concomitant]
     Active Substance: PREDNISOLONE
     Indication: Immunosuppressant drug therapy
     Route: 048
     Dates: start: 20230325, end: 20240425
  5. MIRENA [Concomitant]
     Active Substance: LEVONORGESTREL
     Indication: Heavy menstrual bleeding
     Route: 065
     Dates: start: 2014

REACTIONS (2)
  - Cognitive disorder [Recovering/Resolving]
  - Disturbance in attention [Recovering/Resolving]

NARRATIVE: CASE EVENT DATE: 20230425
